FAERS Safety Report 9736198 (Version 1)
Quarter: 2013Q4

REPORT INFORMATION
  Report Type: Spontaneous
  Country: AE (occurrence: AE)
  Receive Date: 20131206
  Receipt Date: 20131206
  Transmission Date: 20140711
  Serious: Yes (Other)
  Sender: FDA-Public Use
  Company Number: AE-ELI_LILLY_AND_COMPANY-AE201310008152

PATIENT
  Age: 16 Year
  Sex: Male

DRUGS (2)
  1. ATOMOXETINE HYDROCHLORIDE [Suspect]
     Indication: ATTENTION DEFICIT/HYPERACTIVITY DISORDER
     Dosage: UNK, UNKNOWN
     Route: 048
  2. RISPERDAL [Concomitant]
     Indication: AGGRESSION
     Dosage: UNK, UNKNOWN
     Route: 065

REACTIONS (2)
  - Weight decreased [Unknown]
  - Anaemia [Unknown]
